FAERS Safety Report 12738116 (Version 2)
Quarter: 2017Q2

REPORT INFORMATION
  Report Type: Spontaneous
  Country: US (occurrence: US)
  Receive Date: 20160912
  Receipt Date: 20170517
  Transmission Date: 20170830
  Serious: Yes (Other)
  Sender: FDA-Public Use
  Company Number: US-SA-2016SA157705

PATIENT
  Age: 32 Year
  Sex: Male

DRUGS (13)
  1. HYDROCODONE [Concomitant]
     Active Substance: HYDROCODONE
  2. NOVOLOG [Concomitant]
     Active Substance: INSULIN ASPART
  3. TOUJEO [Suspect]
     Active Substance: INSULIN GLARGINE
     Indication: TYPE 2 DIABETES MELLITUS
     Dosage: DOSE:182 UNIT(S)
     Route: 065
     Dates: end: 20160609
  4. METOPROLOL. [Concomitant]
     Active Substance: METOPROLOL
  5. TOUJEO [Suspect]
     Active Substance: INSULIN GLARGINE
     Indication: TYPE 2 DIABETES MELLITUS
     Route: 065
     Dates: start: 201408
  6. NEXIUM [Concomitant]
     Active Substance: ESOMEPRAZOLE MAGNESIUM
  7. GABAPENTIN. [Concomitant]
     Active Substance: GABAPENTIN
  8. SOLOSTAR [Concomitant]
     Active Substance: DEVICE
     Indication: TYPE 2 DIABETES MELLITUS
  9. LISINOPRIL. [Concomitant]
     Active Substance: LISINOPRIL
     Dates: start: 2009
  10. METFORMIN [Concomitant]
     Active Substance: METFORMIN HYDROCHLORIDE
     Dates: end: 2015
  11. METFORMIN [Concomitant]
     Active Substance: METFORMIN HYDROCHLORIDE
  12. TRAMADOL. [Concomitant]
     Active Substance: TRAMADOL
  13. ALLOPURINOL. [Concomitant]
     Active Substance: ALLOPURINOL

REACTIONS (17)
  - Depressed level of consciousness [Unknown]
  - Blood creatinine increased [Unknown]
  - Glycosylated haemoglobin increased [Unknown]
  - Tremor [Unknown]
  - Tachycardia [Unknown]
  - Chest pain [Unknown]
  - Blood glucose increased [Unknown]
  - Blood glucose decreased [Unknown]
  - Fluid retention [Unknown]
  - Hyperhidrosis [Unknown]
  - Confusional state [Unknown]
  - Hunger [Unknown]
  - Swelling [Unknown]
  - Somnolence [Unknown]
  - Diarrhoea [Unknown]
  - Condition aggravated [Unknown]
  - Dyspnoea [Unknown]
